FAERS Safety Report 17184938 (Version 3)
Quarter: 2020Q1

REPORT INFORMATION
  Report Type: Spontaneous
  Country: CA (occurrence: CA)
  Receive Date: 20191220
  Receipt Date: 20200210
  Transmission Date: 20200409
  Serious: Yes (Death, Hospitalization)
  Sender: FDA-Public Use
  Company Number: CA-ACTELION-A-NJ2017-159894

PATIENT
  Age: 57 Year
  Sex: Female
  Weight: 63 kg

DRUGS (20)
  1. EPLERENONE. [Concomitant]
     Active Substance: EPLERENONE
     Dosage: 50 MG, QD
     Route: 048
  2. VITAMIN D [Concomitant]
     Active Substance: VITAMIN D NOS
  3. MORPHINE [Concomitant]
     Active Substance: MORPHINE
     Dosage: UNK, PRN
  4. FUROSEMIDE. [Concomitant]
     Active Substance: FUROSEMIDE
     Dosage: 20 MG, BID
  5. OPSUMIT [Suspect]
     Active Substance: MACITENTAN
     Dosage: 10 MG, QD
     Route: 048
     Dates: start: 20190626, end: 20191219
  6. COUMADIN [Concomitant]
     Active Substance: WARFARIN SODIUM
  7. ULORIC [Concomitant]
     Active Substance: FEBUXOSTAT
     Dosage: 80 MG, QD
  8. ATASOL [Concomitant]
     Dosage: 500 MG, PRN
  9. POTASSIUM CHLORIDE. [Concomitant]
     Active Substance: POTASSIUM CHLORIDE
  10. VALSARTAN. [Concomitant]
     Active Substance: VALSARTAN
     Dosage: 40 MG, UNK
  11. ACEBUTOLOL TEVA [Concomitant]
     Dosage: 100 MG, UNK
  12. FLOVENT [Concomitant]
     Active Substance: FLUTICASONE PROPIONATE
     Dosage: Q2DAYS
  13. OPSUMIT [Suspect]
     Active Substance: MACITENTAN
     Indication: PULMONARY ARTERIAL HYPERTENSION
     Dosage: 10 MG, QD
     Route: 048
     Dates: start: 20170911
  14. SYNTHROID [Concomitant]
     Active Substance: LEVOTHYROXINE SODIUM
     Dosage: 0.1 MG, UNK
  15. TOLOXIN [Concomitant]
     Active Substance: DIGOXIN
     Dosage: 0.062 MG, UNK
  16. ZAROXOLYN [Concomitant]
     Active Substance: METOLAZONE
     Dosage: 25 UNK, QD
  17. DIGOXIN. [Concomitant]
     Active Substance: DIGOXIN
  18. ACEBUTOLOL TEVA [Concomitant]
     Dosage: 50 UNK
     Route: 048
  19. FUROSEMIDE. [Concomitant]
     Active Substance: FUROSEMIDE
     Dosage: 120 UNK
  20. FUROSEMIDE. [Concomitant]
     Active Substance: FUROSEMIDE
     Dosage: 160 UNK
     Route: 042

REACTIONS (10)
  - Oedema peripheral [Unknown]
  - Heart disease congenital [Fatal]
  - Weight increased [Unknown]
  - Fluid overload [Unknown]
  - Renal failure [Unknown]
  - Fluid retention [Unknown]
  - Dyspnoea [Not Recovered/Not Resolved]
  - Cardiorenal syndrome [Unknown]
  - Disease progression [Fatal]
  - Cardiac failure chronic [Unknown]

NARRATIVE: CASE EVENT DATE: 20170911
